FAERS Safety Report 7746701-9 (Version None)
Quarter: 2011Q3

REPORT INFORMATION
  Report Type: 
  Country: None (occurrence: None)
  Receive Date: 20110908
  Receipt Date: 20110824
  Transmission Date: 20111222
  Serious: Yes (Death, Other)
  Sender: FDA-Public Use
  Company Number: 2011MPI00152

PATIENT
  Age: 34 Year
  Sex: Male

DRUGS (4)
  1. LEVOTHYROXINE SODIUM [Concomitant]
  2. SGN-35 (CAC10-VCMMAE) ADCETRIS [Suspect]
     Indication: HODGKIN'S DISEASE
     Dosage: 1.8 MG/KG, INTRAVENOUS
     Route: 042
     Dates: start: 20110714, end: 20110714
  3. BISOPROLOL FUMARATE [Concomitant]
  4. ALLOPURINOL [Concomitant]

REACTIONS (5)
  - DIZZINESS [None]
  - HEADACHE [None]
  - CONVULSION [None]
  - POLYDIPSIA [None]
  - ASTHENIA [None]
